FAERS Safety Report 6940430-7 (Version None)
Quarter: 2010Q3

REPORT INFORMATION
  Report Type: 
  Country: None (occurrence: None)
  Receive Date: 20100825
  Receipt Date: 20100812
  Transmission Date: 20110219
  Serious: Yes (Hospitalization, Other)
  Sender: FDA-Public Use
  Company Number: PHHY2010CA19596

PATIENT
  Sex: Male

DRUGS (5)
  1. SANDOSTATIN LAR [Suspect]
     Indication: ACROMEGALY
     Dosage: 30 MG, EVERY 4 WEEKS
     Route: 030
     Dates: start: 20070807
  2. DOSTINEX [Concomitant]
     Dosage: 0.5 MG, 5X PER WEEK
  3. LIPITOR [Concomitant]
     Dosage: 40 MG, QD
  4. DIOVAN [Concomitant]
     Dosage: 80 MG, QD
  5. METFORMIN [Concomitant]
     Dosage: 500 MG, TID

REACTIONS (4)
  - ANAEMIA [None]
  - COLON POLYPECTOMY [None]
  - HAEMORRHAGE [None]
  - MALAISE [None]
